FAERS Safety Report 10443612 (Version 1)
Quarter: 2014Q3

REPORT INFORMATION
  Report Type: Spontaneous
  Country: US (occurrence: US)
  Receive Date: 20140910
  Receipt Date: 20140910
  Transmission Date: 20150326
  Serious: No
  Sender: FDA-Public Use
  Company Number: US-BIOGENIDEC-2014BI090709

PATIENT
  Age: 55 Year
  Sex: Female

DRUGS (19)
  1. AFRIN SINUS [Concomitant]
     Active Substance: OXYMETAZOLINE HYDROCHLORIDE
  2. FLUTICASONE PROPIONATE. [Concomitant]
     Active Substance: FLUTICASONE PROPIONATE
  3. DOXYCYCLINE HYCLATE. [Concomitant]
     Active Substance: DOXYCYCLINE HYCLATE
  4. LEVOXYL [Concomitant]
     Active Substance: LEVOTHYROXINE SODIUM
  5. ALEVE [Concomitant]
     Active Substance: NAPROXEN SODIUM
  6. ESTRADIOL. [Concomitant]
     Active Substance: ESTRADIOL
  7. EXCEDRIN MIGRAINE [Concomitant]
     Active Substance: ACETAMINOPHEN\ASPIRIN\CAFFEINE
  8. FLEXGEN (NOS) [Concomitant]
  9. VIT B [Concomitant]
     Active Substance: VITAMINS
  10. PROVIGIL [Concomitant]
     Active Substance: MODAFINIL
  11. GABAPENTIN. [Concomitant]
     Active Substance: GABAPENTIN
  12. COLACE [Concomitant]
     Active Substance: DOCUSATE SODIUM
  13. FISH OIL [Concomitant]
     Active Substance: FISH OIL
  14. TESTOSTERONE MICRONIZED [Concomitant]
  15. GAS-X [Concomitant]
     Active Substance: DIMETHICONE
  16. TECFIDERA [Suspect]
     Active Substance: DIMETHYL FUMARATE
     Indication: MULTIPLE SCLEROSIS
     Route: 048
     Dates: start: 20140617
  17. CYCLOBENZAPRINE HCL [Concomitant]
     Active Substance: CYCLOBENZAPRINE HYDROCHLORIDE
  18. OXYCODONE HCL [Concomitant]
     Active Substance: OXYCODONE HYDROCHLORIDE
  19. DICLOFENAC SODIUM. [Concomitant]
     Active Substance: DICLOFENAC SODIUM

REACTIONS (2)
  - Abdominal discomfort [Unknown]
  - Abdominal distension [Unknown]
